FAERS Safety Report 19887585 (Version 3)
Quarter: 2021Q4

REPORT INFORMATION
  Report Type: Spontaneous
  Country: EG (occurrence: EG)
  Receive Date: 20210928
  Receipt Date: 20211025
  Transmission Date: 20220303
  Serious: Yes (Other)
  Sender: FDA-Public Use
  Company Number: EG-NOVOPROD-849010

PATIENT
  Sex: Female
  Weight: 75 kg

DRUGS (2)
  1. INSULIN HUMAN [Suspect]
     Active Substance: INSULIN HUMAN
     Indication: Diabetes mellitus
     Dosage: 40 OR 30 IU MORNING - 30 OR 15 IU NIGHT
     Route: 058
  2. INSULIN HUMAN [Suspect]
     Active Substance: INSULIN HUMAN
     Dosage: UNK(DOSES ACCORDING TO THE BG LEVEL )
     Route: 058

REACTIONS (3)
  - Diabetic retinal oedema [Not Recovered/Not Resolved]
  - Diabetic neuropathy [Unknown]
  - Hyperglycaemia [Unknown]
